FAERS Safety Report 9292049 (Version 4)
Quarter: 2013Q2

REPORT INFORMATION
  Report Type: Spontaneous
  Country: US (occurrence: US)
  Receive Date: 20130516
  Receipt Date: 20130617
  Transmission Date: 20140414
  Serious: No
  Sender: FDA-Public Use
  Company Number: US-BIOGENIDEC-2013BI032384

PATIENT
  Sex: Male

DRUGS (4)
  1. AVONEX [Suspect]
     Indication: MULTIPLE SCLEROSIS
     Route: 030
  2. AVONEX [Suspect]
     Indication: MULTIPLE SCLEROSIS
     Route: 030
     Dates: start: 19960701
  3. AVONEX [Suspect]
     Indication: MULTIPLE SCLEROSIS
     Route: 030
  4. AVONEX [Suspect]
     Indication: MULTIPLE SCLEROSIS
     Route: 030

REACTIONS (19)
  - Nerve injury [Recovered/Resolved]
  - Injection site haemorrhage [Recovered/Resolved]
  - Memory impairment [Unknown]
  - Nervous system disorder [Unknown]
  - Vascular injury [Recovered/Resolved]
  - Fear [Unknown]
  - Multiple sclerosis [Unknown]
  - Temperature intolerance [Not Recovered/Not Resolved]
  - Gait disturbance [Recovered/Resolved]
  - Cognitive disorder [Not Recovered/Not Resolved]
  - Dyskinesia [Recovered/Resolved]
  - Drug administered at inappropriate site [Recovered/Resolved]
  - Underdose [Unknown]
  - Confusional state [Unknown]
  - Injection site pain [Recovered/Resolved]
  - Muscular weakness [Recovered/Resolved]
  - Influenza like illness [Recovered/Resolved]
  - Headache [Recovered/Resolved]
  - Injection site discomfort [Recovered/Resolved]
